FAERS Safety Report 5014528-7 (Version None)
Quarter: 2006Q2

REPORT INFORMATION
  Report Type: 
  Country: None (occurrence: None)
  Receive Date: 20060531
  Receipt Date: 20060524
  Transmission Date: 20061013
  Serious: Yes (Other)
  Sender: FDA-Public Use
  Company Number: US-AVENTIS-200614691US

PATIENT
  Sex: Male

DRUGS (3)
  1. ANZEMET [Suspect]
     Dosage: DOSE: UNK
  2. ZOLOFT [Suspect]
     Dosage: DOSE: UNK
  3. UNKNOWN DRUG [Suspect]
     Dosage: DOSE: UNK

REACTIONS (1)
  - SEROTONIN SYNDROME [None]
